FAERS Safety Report 20721288 (Version 7)
Quarter: 2023Q2

REPORT INFORMATION
  Report Type: Report from Study
  Country: US (occurrence: US)
  Receive Date: 20220418
  Receipt Date: 20230417
  Transmission Date: 20230721
  Serious: No
  Sender: FDA-Public Use
  Company Number: US-NOVARTISTESTPH-NVSC2022US084988

PATIENT
  Sex: Female

DRUGS (1)
  1. KESIMPTA [Suspect]
     Active Substance: OFATUMUMAB
     Indication: Product used for unknown indication
     Dosage: UNK
     Route: 065

REACTIONS (12)
  - Nausea [Unknown]
  - Middle insomnia [Unknown]
  - Balance disorder [Unknown]
  - Asthenia [Unknown]
  - Temperature intolerance [Unknown]
  - Migraine [Unknown]
  - Dizziness [Unknown]
  - Paraesthesia [Unknown]
  - Poor quality sleep [Unknown]
  - Chest discomfort [Unknown]
  - Headache [Unknown]
  - Inappropriate schedule of product administration [Unknown]
